FAERS Safety Report 9539573 (Version 2)
Quarter: 2013Q4

REPORT INFORMATION
  Report Type: Spontaneous
  Country: US (occurrence: US)
  Receive Date: 20130920
  Receipt Date: 20131008
  Transmission Date: 20140711
  Serious: Yes (Other)
  Sender: FDA-Public Use
  Company Number: US-JNJFOC-20130909350

PATIENT
  Age: 62 Year
  Sex: Male
  Weight: 88.91 kg

DRUGS (13)
  1. NUCYNTA [Suspect]
     Indication: SPINAL FUSION SURGERY
     Route: 048
     Dates: start: 201308, end: 201308
  2. NUCYNTA [Suspect]
     Indication: SPINAL FUSION SURGERY
     Dosage: ONCE A DAY
     Route: 048
     Dates: start: 2012, end: 2013
  3. NUCYNTA [Suspect]
     Indication: BACK DISORDER
     Route: 048
     Dates: start: 201308, end: 201308
  4. NUCYNTA [Suspect]
     Indication: BACK DISORDER
     Dosage: ONCE A DAY
     Route: 048
     Dates: start: 2012, end: 2013
  5. RISPERIDONE [Concomitant]
     Dosage: ONCE A DAY
     Route: 048
  6. DICYCLOMINE [Concomitant]
     Indication: GASTRIC DISORDER
     Dosage: TWICE A DAY
     Route: 048
  7. CLONAZEPAM [Concomitant]
     Indication: ANXIETY
     Dosage: TWICE A DAY
     Route: 048
  8. LAMOTRIGINE [Concomitant]
     Indication: CONVULSION
     Dosage: TWICE A DAY
     Route: 048
     Dates: start: 2003
  9. SEROQUEL XR [Concomitant]
     Indication: SLEEP DISORDER
     Dosage: AT BED TIME
     Route: 048
     Dates: start: 2013
  10. CITALOPRAM [Concomitant]
     Indication: DEPRESSION
     Dosage: ONCE A DAY
     Route: 048
  11. HYDROCHLOROTHIAZIDE [Concomitant]
     Indication: BLOOD PRESSURE
     Dosage: ONCE A DAY
     Route: 048
  12. PRIMIDONE [Concomitant]
     Indication: BLOOD PRESSURE
     Dosage: ONCE A DAY
     Route: 048
  13. LISINOPRIL [Concomitant]
     Indication: BLOOD PRESSURE
     Dosage: ONCE A DAY
     Route: 048

REACTIONS (5)
  - Cerebral ischaemia [Not Recovered/Not Resolved]
  - Demyelination [Not Recovered/Not Resolved]
  - Psychiatric symptom [Unknown]
  - Overdose [Unknown]
  - Hypersomnia [Recovered/Resolved]
